FAERS Safety Report 16209835 (Version 1)
Quarter: 2019Q2

REPORT INFORMATION
  Report Type: Spontaneous
  Country: GB (occurrence: GB)
  Receive Date: 20190417
  Receipt Date: 20190417
  Transmission Date: 20190711
  Serious: Yes (Life-Threatening, Hospitalization)
  Sender: FDA-Public Use
  Company Number: GB-ALLERGAN-1916523US

PATIENT
  Sex: Female
  Weight: 72.11 kg

DRUGS (1)
  1. CITALOPRAM HYDROBROMIDE - BP [Suspect]
     Active Substance: CITALOPRAM HYDROBROMIDE
     Indication: ANXIETY
     Dosage: 30 MG
     Route: 048
     Dates: start: 20100204, end: 20100704

REACTIONS (3)
  - Nightmare [Recovered/Resolved]
  - Suicidal ideation [Recovered/Resolved]
  - Anxiety [Recovered/Resolved]

NARRATIVE: CASE EVENT DATE: 20100408
